FAERS Safety Report 10153468 (Version 2)
Quarter: 2014Q2

REPORT INFORMATION
  Report Type: Report from Study
  Country: US (occurrence: US)
  Receive Date: 20140505
  Receipt Date: 20140512
  Transmission Date: 20141212
  Serious: Yes (Hospitalization)
  Sender: FDA-Public Use
  Company Number: US-ABBVIE-14P-163-1229821-00

PATIENT
  Age: 65 Year
  Sex: Female

DRUGS (7)
  1. HUMIRA [Suspect]
     Indication: CROHN^S DISEASE
     Dates: start: 20140319, end: 20140319
  2. HUMIRA [Suspect]
     Dates: start: 20140320, end: 20140320
  3. HUMIRA [Suspect]
  4. HUMIRA [Suspect]
     Dates: start: 20140415
  5. PRILOSEC [Concomitant]
     Indication: PRODUCT USED FOR UNKNOWN INDICATION
  6. CODEINE 3 [Concomitant]
     Indication: PRODUCT USED FOR UNKNOWN INDICATION
  7. VICODIN [Concomitant]
     Indication: PRODUCT USED FOR UNKNOWN INDICATION

REACTIONS (4)
  - Intestinal obstruction [Not Recovered/Not Resolved]
  - Abdominal pain [Recovered/Resolved]
  - Injection site pain [Not Recovered/Not Resolved]
  - Crohn^s disease [Not Recovered/Not Resolved]
